FAERS Safety Report 10697752 (Version 1)
Quarter: 2015Q1

REPORT INFORMATION
  Report Type: Spontaneous
  Country: US (occurrence: US)
  Receive Date: 20150108
  Receipt Date: 20150108
  Transmission Date: 20150721
  Serious: Yes (Other)
  Sender: FDA-Public Use
  Company Number: US-PFIZER INC-2015002951

PATIENT
  Age: 61 Year
  Sex: Female
  Weight: 72 kg

DRUGS (2)
  1. LYRICA [Suspect]
     Active Substance: PREGABALIN
     Indication: NEURALGIA
     Dosage: UNK
     Dates: start: 2012
  2. BENADRYL [Suspect]
     Active Substance: DIPHENHYDRAMINE HYDROCHLORIDE
     Dosage: UNK

REACTIONS (9)
  - Blister [Unknown]
  - Swelling face [Unknown]
  - Rash [Unknown]
  - Palpitations [Unknown]
  - Dyspnoea [Unknown]
  - Gingival swelling [Unknown]
  - Throat tightness [Unknown]
  - Lymphadenopathy [Unknown]
  - Fluid retention [Unknown]
